FAERS Safety Report 10880973 (Version 1)
Quarter: 2015Q1

REPORT INFORMATION
  Report Type: Spontaneous
  Country: CH (occurrence: CH)
  Receive Date: 20150303
  Receipt Date: 20150303
  Transmission Date: 20150721
  Serious: Yes (Hospitalization)
  Sender: FDA-Public Use
  Company Number: CH-BAYER-2015-030496

PATIENT
  Sex: Female

DRUGS (1)
  1. MIRENA [Suspect]
     Active Substance: LEVONORGESTREL
     Dosage: 20 MCG/24HR, CONT
     Route: 015
     Dates: start: 20150130, end: 201502

REACTIONS (5)
  - Multiple sclerosis [None]
  - Fatigue [None]
  - Headache [None]
  - Neurological decompensation [None]
  - Visual acuity reduced [None]

NARRATIVE: CASE EVENT DATE: 201502
